FAERS Safety Report 25900850 (Version 2)
Quarter: 2025Q4

REPORT INFORMATION
  Report Type: Report from Study
  Country: EU (occurrence: EU)
  Receive Date: 20251009
  Receipt Date: 20251027
  Transmission Date: 20260117
  Serious: Yes (Death, Hospitalization)
  Sender: JOHNSON AND JOHNSON
  Company Number: EU-JNJFOC-20250947051

PATIENT
  Sex: Male

DRUGS (6)
  1. AMIVANTAMAB [Suspect]
     Active Substance: AMIVANTAMAB
     Indication: Non-small cell lung cancer
     Dosage: LINE 4
     Route: 065
     Dates: start: 20250922
  2. AMIVANTAMAB [Suspect]
     Active Substance: AMIVANTAMAB
     Dosage: DATE OF LAST DOSE BEFORE THE EVENT:23-SEP-2025 LAST DOSE BEFORE THE EVENT (MG): 1050 MG
     Route: 065
  3. CARBOPLATIN [Suspect]
     Active Substance: CARBOPLATIN
     Indication: Non-small cell lung cancer
     Dosage: LINE 4
     Route: 065
     Dates: start: 20250924
  4. CARBOPLATIN [Suspect]
     Active Substance: CARBOPLATIN
     Dosage: DATE OF LAST DOSE BEFORE THE EVENT:24-SEP-2025 LAST DOSE BEFORE THE EVENT (MG): 229 MG
     Route: 065
  5. PEMETREXED [Suspect]
     Active Substance: PEMETREXED
     Indication: Non-small cell lung cancer
     Dosage: LINE 4
     Route: 065
     Dates: start: 20250924
  6. PEMETREXED [Suspect]
     Active Substance: PEMETREXED
     Dosage: DATE OF LAST DOSE BEFORE THE EVENT:24-SEP-2025 LAST DOSE BEFORE THE EVENT (MG): 520 MG
     Route: 065

REACTIONS (2)
  - General physical health deterioration [Fatal]
  - Constipation [Recovered/Resolved]

NARRATIVE: CASE EVENT DATE: 20250926
